FAERS Safety Report 7510987-6 (Version None)
Quarter: 2011Q2

REPORT INFORMATION
  Report Type: 
  Country: None (occurrence: None)
  Receive Date: 20110531
  Receipt Date: 20110525
  Transmission Date: 20111010
  Serious: No
  Sender: FDA-Public Use
  Company Number: US-PFIZER INC-2010126195

PATIENT
  Sex: Female
  Weight: 87.982 kg

DRUGS (2)
  1. AVODART [Concomitant]
     Indication: HYPERTENSION
     Dosage: UNK
  2. AROMASIN [Suspect]
     Indication: BREAST CANCER RECURRENT
     Dosage: 25 MG, 1X/DAY
     Dates: start: 20100201

REACTIONS (2)
  - FEELING COLD [None]
  - CHILLS [None]
